FAERS Safety Report 17372845 (Version 2)
Quarter: 2020Q1

REPORT INFORMATION
  Report Type: Spontaneous
  Country: US (occurrence: US)
  Receive Date: 20200205
  Receipt Date: 20200207
  Transmission Date: 20200409
  Serious: Yes (Other)
  Sender: FDA-Public Use
  Company Number: US-TEVA-2020-US-1179126

PATIENT
  Age: 63 Year
  Sex: Female

DRUGS (1)
  1. TRAZODONE HYDROCHLORIDE TEVA [Suspect]
     Active Substance: TRAZODONE HYDROCHLORIDE
     Indication: SLEEP DISORDER
     Route: 065
     Dates: start: 202001, end: 20200119

REACTIONS (5)
  - Gait disturbance [Unknown]
  - Limb discomfort [Unknown]
  - Off label use [Unknown]
  - Cerebrovascular accident [Unknown]
  - Dysarthria [Unknown]

NARRATIVE: CASE EVENT DATE: 202001
